FAERS Safety Report 8006661-2 (Version None)
Quarter: 2011Q4

REPORT INFORMATION
  Report Type: 
  Country: None (occurrence: None)
  Receive Date: 20111227
  Receipt Date: 20111213
  Transmission Date: 20120403
  Serious: Yes (Disabling)
  Sender: FDA-Public Use
  Company Number: IT-BAYER-2011-113699

PATIENT
  Age: 23 Year
  Sex: Male

DRUGS (2)
  1. CIPROFLAXACIN [Suspect]
     Indication: DIARRHOEA
     Dosage: 0.5 MG, BID
     Route: 048
     Dates: start: 20110301
  2. FRISIUM [Concomitant]
     Indication: INSOMNIA
     Dosage: 10 MG, HS

REACTIONS (6)
  - MYALGIA [None]
  - FASCIITIS [None]
  - GAIT DISTURBANCE [None]
  - TENDONITIS [None]
  - DIZZINESS [None]
  - BALANCE DISORDER [None]
